FAERS Safety Report 4883485-6 (Version None)
Quarter: 2006Q1

REPORT INFORMATION
  Report Type: 
  Country: None (occurrence: None)
  Receive Date: 20060118
  Receipt Date: 20050218
  Transmission Date: 20060701
  Serious: Yes (Hospitalization)
  Sender: FDA-Public Use
  Company Number: US-MERCK-0502USA02902

PATIENT
  Age: 56 Year
  Sex: Male
  Weight: 84 kg

DRUGS (2)
  1. VIOXX [Suspect]
     Indication: OSTEOARTHRITIS
     Route: 048
     Dates: start: 20000501, end: 20030801
  2. NORVASC [Concomitant]
     Route: 065

REACTIONS (4)
  - PRESCRIBED OVERDOSE [None]
  - PROSTATE EXAMINATION ABNORMAL [None]
  - SENSATION OF FOREIGN BODY [None]
  - TRANSIENT ISCHAEMIC ATTACK [None]
